FAERS Safety Report 5673815-X (Version None)
Quarter: 2008Q1

REPORT INFORMATION
  Report Type: 
  Country: None (occurrence: None)
  Receive Date: 20080319
  Receipt Date: 20080307
  Transmission Date: 20080703
  Serious: Yes (Hospitalization)
  Sender: FDA-Public Use
  Company Number: US-PFIZER INC-2008023036

PATIENT
  Sex: Male
  Weight: 83.636 kg

DRUGS (9)
  1. CHANTIX [Suspect]
     Indication: SMOKING CESSATION THERAPY
     Dates: start: 20080201, end: 20080306
  2. METFORMIN HCL [Concomitant]
     Indication: DIABETES MELLITUS
  3. ACTOS [Concomitant]
     Indication: DIABETES MELLITUS
  4. CELECOXIB [Concomitant]
     Indication: MUSCULOSKELETAL DISORDER
  5. PROTONIX [Concomitant]
     Indication: GASTROOESOPHAGEAL REFLUX DISEASE
  6. ASACOL [Concomitant]
     Indication: CROHN'S DISEASE
  7. COLACE [Concomitant]
  8. BENZYLPENICILLIN SODIUM [Concomitant]
  9. DARVOCET [Concomitant]

REACTIONS (11)
  - ABDOMINAL PAIN [None]
  - CONFUSIONAL STATE [None]
  - CONSTIPATION [None]
  - DRY MOUTH [None]
  - DYSGEUSIA [None]
  - DYSPHAGIA [None]
  - EATING DISORDER [None]
  - MALAISE [None]
  - PHARYNGOLARYNGEAL PAIN [None]
  - SPEECH DISORDER [None]
  - THROAT TIGHTNESS [None]
